FAERS Safety Report 16503273 (Version 1)
Quarter: 2019Q3

REPORT INFORMATION
  Report Type: Report from Study
  Country: US (occurrence: US)
  Receive Date: 20190701
  Receipt Date: 20190701
  Transmission Date: 20191004
  Serious: No
  Sender: FDA-Public Use
  Company Number: US-BEH-2019103472

PATIENT
  Age: 44 Year
  Sex: Female
  Weight: 82.99 kg

DRUGS (1)
  1. HAEGARDA [Suspect]
     Active Substance: HUMAN C1-ESTERASE INHIBITOR
     Indication: HEREDITARY ANGIOEDEMA
     Route: 065

REACTIONS (6)
  - Pain in extremity [Unknown]
  - Road traffic accident [Unknown]
  - Abdominal pain lower [Unknown]
  - Pain [Unknown]
  - Groin pain [Unknown]
  - Arthralgia [Unknown]

NARRATIVE: CASE EVENT DATE: 20190519
